FAERS Safety Report 9594375 (Version 1)
Quarter: 2013Q4

REPORT INFORMATION
  Report Type: Spontaneous
  Country: NO (occurrence: NO)
  Receive Date: 20131004
  Receipt Date: 20131004
  Transmission Date: 20140711
  Serious: Yes (Death, Hospitalization, Other)
  Sender: FDA-Public Use
  Company Number: NO-BAYER-2013-119602

PATIENT
  Sex: 0

DRUGS (15)
  1. ASPIRIN [Suspect]
  2. OXAZEPAM [Interacting]
  3. TRAMADOL HYDROCHLORIDE [Interacting]
  4. DIGITOXIN [Interacting]
  5. FENTANYL [Interacting]
  6. KETOBEMIDONE [Interacting]
  7. HYDROCHLOROTHIAZIDE [Interacting]
  8. SIMVASTATIN [Interacting]
  9. BUPRENORPHINE [Interacting]
  10. MIDAZOLAM [Interacting]
  11. WARFARIN SODIUM [Interacting]
  12. OXYCODONE [Interacting]
  13. DIAZEPAM [Interacting]
  14. MORPHINE [Interacting]
  15. ACETAMINOPHEN [Interacting]

REACTIONS (2)
  - Death [Fatal]
  - Drug interaction [Unknown]
